FAERS Safety Report 22146689 (Version 1)
Quarter: 2023Q1

REPORT INFORMATION
  Report Type: Report from Study
  Country: US (occurrence: US)
  Receive Date: 20230328
  Receipt Date: 20230328
  Transmission Date: 20230417
  Serious: Yes (Other)
  Sender: FDA-Public Use
  Company Number: US-ABBVIE-4284842

PATIENT
  Age: 73 Year
  Sex: Female

DRUGS (1)
  1. SKYRIZI [Suspect]
     Active Substance: RISANKIZUMAB-RZAA
     Indication: Crohn^s disease
     Route: 030
     Dates: start: 20221115

REACTIONS (6)
  - Colonic abscess [Not Recovered/Not Resolved]
  - Large intestinal stenosis [Not Recovered/Not Resolved]
  - Fatigue [Recovered/Resolved]
  - Crohn^s disease [Unknown]
  - Dyschezia [Unknown]
  - Colonic fistula [Unknown]

NARRATIVE: CASE EVENT DATE: 20221115
